FAERS Safety Report 12632883 (Version 2)
Quarter: 2016Q3

REPORT INFORMATION
  Report Type: Spontaneous
  Country: US (occurrence: US)
  Receive Date: 20160808
  Receipt Date: 20160808
  Transmission Date: 20161109
  Serious: No
  Sender: FDA-Public Use
  Company Number: US-BEH-2015057369

PATIENT
  Sex: Male
  Weight: 67 kg

DRUGS (47)
  1. AVINZA [Concomitant]
     Active Substance: MORPHINE SULFATE
  2. NITROSTAT [Concomitant]
     Active Substance: NITROGLYCERIN
  3. NASONEX [Concomitant]
     Active Substance: MOMETASONE FUROATE
  4. OMEPRAZOLE. [Concomitant]
     Active Substance: OMEPRAZOLE
  5. AUGMENTIN [Concomitant]
     Active Substance: AMOXICILLIN\CLAVULANATE POTASSIUM
  6. HIZENTRA [Suspect]
     Active Substance: HUMAN IMMUNOGLOBULIN G
     Route: 058
  7. MORPHINE [Concomitant]
     Active Substance: MORPHINE
  8. PEPCID [Concomitant]
     Active Substance: FAMOTIDINE
  9. ASTELIN [Concomitant]
     Active Substance: AZELASTINE HYDROCHLORIDE
  10. PROMETHAZINE [Concomitant]
     Active Substance: PROMETHAZINE\PROMETHAZINE HYDROCHLORIDE
  11. VENTOLIN HFA [Concomitant]
     Active Substance: ALBUTEROL SULFATE
  12. METHYLPHENIDATE. [Concomitant]
     Active Substance: METHYLPHENIDATE
     Dosage: ER
  13. ZENPEP [Concomitant]
     Active Substance: PANCRELIPASE AMYLASE\PANCRELIPASE LIPASE\PANCRELIPASE PROTEASE
     Dosage: DR
  14. DONNATAL [Concomitant]
     Active Substance: ATROPINE SULFATE\HYOSCYAMINE SULFATE\PHENOBARBITAL\SCOPOLAMINE HYDROBROMIDE
  15. L-M-X [Concomitant]
  16. ZITHROMAX [Concomitant]
     Active Substance: AZITHROMYCIN DIHYDRATE
  17. AMBIEN [Concomitant]
     Active Substance: ZOLPIDEM TARTRATE
  18. OXYCODONE [Concomitant]
     Active Substance: OXYCODONE
  19. MUPIROCIN. [Concomitant]
     Active Substance: MUPIROCIN
  20. HIZENTRA [Suspect]
     Active Substance: HUMAN IMMUNOGLOBULIN G
     Indication: IMMUNODEFICIENCY COMMON VARIABLE
     Route: 058
  21. BACTROBAN [Concomitant]
     Active Substance: MUPIROCIN\MUPIROCIN CALCIUM
  22. EPIPEN [Concomitant]
     Active Substance: EPINEPHRINE
  23. OXYCONTIN [Concomitant]
     Active Substance: OXYCODONE HYDROCHLORIDE
  24. ASPIRIN. [Concomitant]
     Active Substance: ASPIRIN
  25. LEVOTHYROXINE. [Concomitant]
     Active Substance: LEVOTHYROXINE
  26. BACTRIM DS [Concomitant]
     Active Substance: SULFAMETHOXAZOLE\TRIMETHOPRIM
  27. NABUMETONE. [Concomitant]
     Active Substance: NABUMETONE
  28. ACETAMINOPHEN. [Concomitant]
     Active Substance: ACETAMINOPHEN
  29. TYLENOL-CODEINE NO.4 [Concomitant]
  30. LISINOPRIL. [Concomitant]
     Active Substance: LISINOPRIL
  31. HIZENTRA [Suspect]
     Active Substance: HUMAN IMMUNOGLOBULIN G
     Route: 058
  32. AMOXICILLIN. [Concomitant]
     Active Substance: AMOXICILLIN
  33. EUFLEXXA [Concomitant]
     Active Substance: HYALURONATE SODIUM
  34. DIFLUCAN [Concomitant]
     Active Substance: FLUCONAZOLE
  35. PREVIDENT [Concomitant]
     Active Substance: SODIUM FLUORIDE
  36. SYMBICORT [Concomitant]
     Active Substance: BUDESONIDE\FORMOTEROL FUMARATE DIHYDRATE
  37. SULFASALAZINE. [Concomitant]
     Active Substance: SULFASALAZINE
  38. CONCERTA [Concomitant]
     Active Substance: METHYLPHENIDATE HYDROCHLORIDE
     Dosage: ER
  39. DIPHENHYDRAMINE. [Concomitant]
     Active Substance: DIPHENHYDRAMINE
  40. LIDOCAINE/PRILOCAINE [Concomitant]
     Active Substance: LIDOCAINE\PRILOCAINE
  41. ERY-TAB [Concomitant]
     Active Substance: ERYTHROMYCIN
  42. PROVENTIL [Concomitant]
     Active Substance: ALBUTEROL
  43. FOLIC ACID. [Concomitant]
     Active Substance: FOLIC ACID
  44. CEFTIN [Concomitant]
     Active Substance: CEFUROXIME AXETIL
  45. TEMAZEPAM. [Concomitant]
     Active Substance: TEMAZEPAM
  46. LIDODERM [Concomitant]
     Active Substance: LIDOCAINE
     Dosage: PATCH
  47. OFLOXACIN. [Concomitant]
     Active Substance: OFLOXACIN

REACTIONS (1)
  - Ill-defined disorder [Unknown]
